FAERS Safety Report 16319893 (Version 1)
Quarter: 2019Q2

REPORT INFORMATION
  Report Type: Spontaneous
  Country: US (occurrence: US)
  Receive Date: 20190515
  Receipt Date: 20190515
  Transmission Date: 20190711
  Serious: No
  Sender: FDA-Public Use
  Company Number: None

PATIENT
  Age: 75 Year
  Sex: Female
  Weight: 70.2 kg

DRUGS (1)
  1. EYLEA [Suspect]
     Active Substance: AFLIBERCEPT
     Indication: NEOVASCULAR AGE-RELATED MACULAR DEGENERATION
     Route: 047

REACTIONS (6)
  - Vision blurred [None]
  - Injection site hypersensitivity [None]
  - Visual impairment [None]
  - Therapeutic product effect decreased [None]
  - Injection site inflammation [None]
  - Inability to afford medication [None]

NARRATIVE: CASE EVENT DATE: 20190411
